FAERS Safety Report 4359410-3 (Version None)
Quarter: 2004Q2

REPORT INFORMATION
  Report Type: 
  Country: None (occurrence: None)
  Receive Date: 20040518
  Receipt Date: 20040507
  Transmission Date: 20050107
  Serious: Yes (Hospitalization)
  Sender: FDA-Public Use
  Company Number: 200411881FR

PATIENT
  Sex: Female

DRUGS (1)
  1. KETEK [Suspect]
     Indication: PNEUMONIA
     Dates: start: 20040301

REACTIONS (3)
  - BRONCHITIS ACUTE [None]
  - PNEUMONIA [None]
  - STREPTOCOCCAL SEPSIS [None]
